FAERS Safety Report 9993494 (Version 1)
Quarter: 2014Q1

REPORT INFORMATION
  Report Type: Spontaneous
  Country: JP (occurrence: JP)
  Receive Date: 20140310
  Receipt Date: 20140310
  Transmission Date: 20141002
  Serious: Yes (Hospitalization)
  Sender: FDA-Public Use
  Company Number: PHHY2014JP028056

PATIENT
  Age: 50 Year
  Sex: Male

DRUGS (1)
  1. NEORAL [Suspect]
     Indication: PSORIASIS
     Dosage: 200 MG, DAILY
     Route: 048
     Dates: end: 20140228

REACTIONS (3)
  - Liver disorder [Unknown]
  - Hepatocellular carcinoma [Unknown]
  - Immunosuppressant drug level increased [Recovering/Resolving]
